FAERS Safety Report 23249652 (Version 3)
Quarter: 2024Q1

REPORT INFORMATION
  Report Type: Spontaneous
  Country: JP (occurrence: JP)
  Receive Date: 20231201
  Receipt Date: 20240101
  Transmission Date: 20240410
  Serious: Yes (Hospitalization, Other)
  Sender: FDA-Public Use
  Company Number: JP-ADVANZ PHARMA-202311010983

PATIENT

DRUGS (13)
  1. ZONISAMIDE [Suspect]
     Active Substance: ZONISAMIDE
     Indication: Epilepsy
     Dosage: 100 MG, BID (EXCEGRAN)
     Route: 048
     Dates: start: 201302, end: 201609
  2. ZONISAMIDE [Suspect]
     Active Substance: ZONISAMIDE
     Dosage: 150 MG, BID
     Route: 048
     Dates: start: 201609, end: 201702
  3. ZONISAMIDE [Suspect]
     Active Substance: ZONISAMIDE
     Dosage: 100 MG, BID
     Route: 048
     Dates: start: 201702, end: 202305
  4. CLONAZEPAM [Suspect]
     Active Substance: CLONAZEPAM
     Indication: Epilepsy
     Dosage: 0.25 MG, QD
     Route: 048
     Dates: start: 20211130, end: 20220530
  5. VALPROATE SODIUM [Suspect]
     Active Substance: VALPROATE SODIUM
     Indication: Product used for unknown indication
     Dosage: UNK
     Route: 048
     Dates: start: 20100222, end: 201302
  6. POTASSIUM CITRATE\SODIUM CITRATE [Concomitant]
     Active Substance: POTASSIUM CITRATE\SODIUM CITRATE
     Dosage: UNK
  7. IGURATIMOD [Concomitant]
     Active Substance: IGURATIMOD
     Indication: Rheumatoid arthritis
     Dosage: UNK
     Route: 048
     Dates: start: 201607, end: 201703
  8. METHOTREXATE [Concomitant]
     Active Substance: METHOTREXATE
     Dosage: 8 MG, QD
     Dates: start: 201702, end: 201703
  9. AZULFIDINE EN-TABS [Concomitant]
     Active Substance: SULFASALAZINE
     Dosage: UNK
     Dates: start: 201703
  10. BUCILLAMINE [Concomitant]
     Active Substance: BUCILLAMINE
     Dosage: UNK
     Dates: start: 201801
  11. Uralyt [Concomitant]
     Dosage: UNK
     Dates: start: 2019
  12. LAMICTAL [Concomitant]
     Active Substance: LAMOTRIGINE
     Dosage: 25 MG
     Dates: start: 20230131
  13. LAMICTAL [Concomitant]
     Active Substance: LAMOTRIGINE
     Dosage: 2 DOSAGE FORM (25 MG 2 TABLETS)
     Dates: start: 20230214

REACTIONS (4)
  - Calculus urinary [Recovering/Resolving]
  - Hydronephrosis [Unknown]
  - Aortic aneurysm [Unknown]
  - Spondylitis [Unknown]

NARRATIVE: CASE EVENT DATE: 20130201
